FAERS Safety Report 4905309-0 (Version None)
Quarter: 2006Q1

REPORT INFORMATION
  Report Type: 
  Country: None (occurrence: None)
  Receive Date: 20060203
  Receipt Date: 20060123
  Transmission Date: 20060701
  Serious: Yes (Death, Hospitalization)
  Sender: FDA-Public Use
  Company Number: 220769

PATIENT
  Age: 56 Year
  Weight: 94 kg

DRUGS (3)
  1. MABTHERA (RITUXIMAB) CONC FOR SOLUTION FOR INFUSION [Suspect]
     Indication: CHRONIC LYMPHOCYTIC LEUKAEMIA
     Dosage: 1045, INTRAVENOUS
     Route: 042
     Dates: start: 20051227
  2. CYCLOPHOSPHAMIDE [Suspect]
     Indication: CHRONIC LYMPHOCYTIC LEUKAEMIA
     Dosage: 500 MG, INTRAVENOUS
     Route: 042
     Dates: start: 20051227
  3. FLUDARABINE PHOSPHATE [Suspect]
     Indication: CHRONIC LYMPHOCYTIC LEUKAEMIA
     Dosage: 50 MG, INTRAVENOUS
     Route: 042
     Dates: start: 20051227

REACTIONS (12)
  - ANORECTAL DISORDER [None]
  - DIALYSIS [None]
  - FEBRILE NEUTROPENIA [None]
  - GRANULOCYTOPENIA [None]
  - MULTI-ORGAN FAILURE [None]
  - NAUSEA [None]
  - PATHOGEN RESISTANCE [None]
  - PSEUDOMONAS INFECTION [None]
  - RENAL FAILURE [None]
  - SEPTIC SHOCK [None]
  - SUDDEN CARDIAC DEATH [None]
  - TREMOR [None]
